FAERS Safety Report 9452409 (Version 1)
Quarter: 2013Q3

REPORT INFORMATION
  Report Type: Report from Study
  Country: CA (occurrence: CA)
  Receive Date: 20130812
  Receipt Date: 20130812
  Transmission Date: 20140515
  Serious: Yes (Other)
  Sender: FDA-Public Use
  Company Number: CA-JNJFOC-20130715897

PATIENT
  Age: 88 Year
  Sex: Female
  Weight: 59 kg

DRUGS (9)
  1. REMICADE [Suspect]
     Indication: RHEUMATOID ARTHRITIS
     Route: 042
  2. REMICADE [Suspect]
     Indication: RHEUMATOID ARTHRITIS
     Route: 042
     Dates: start: 20130518
  3. METHOTREXATE [Concomitant]
     Indication: RHEUMATOID ARTHRITIS
     Route: 065
  4. AMLODIPINE [Concomitant]
     Indication: CARDIAC DISORDER
     Route: 065
  5. RAMIPRIL [Concomitant]
     Indication: CARDIAC DISORDER
     Route: 065
  6. BISOPROLOL [Concomitant]
     Indication: CARDIAC DISORDER
     Route: 065
  7. CO-LATANOPROST [Concomitant]
     Indication: GLAUCOMA
     Route: 031
  8. METFORMIN [Concomitant]
     Indication: TYPE 2 DIABETES MELLITUS
     Route: 065
  9. RISEDRONATE [Concomitant]
     Indication: OSTEOPOROSIS
     Route: 065

REACTIONS (2)
  - Lower respiratory tract infection [Recovered/Resolved]
  - Myocardial infarction [Unknown]
